FAERS Safety Report 10135037 (Version 1)
Quarter: 2014Q2

REPORT INFORMATION
  Report Type: Spontaneous
  Country: US (occurrence: US)
  Receive Date: 20140428
  Receipt Date: 20140428
  Transmission Date: 20141212
  Serious: Yes (Hospitalization)
  Sender: FDA-Public Use
  Company Number: US-ABBVIE-14P-163-1226357-00

PATIENT
  Age: 34 Year
  Sex: Female

DRUGS (1)
  1. HUMIRA [Suspect]
     Indication: RHEUMATOID ARTHRITIS
     Dates: end: 201303

REACTIONS (3)
  - Pain [Recovered/Resolved]
  - Sinusitis [Recovered/Resolved]
  - Cough [Recovered/Resolved]
